FAERS Safety Report 7930651 (Version 6)
Quarter: 2013Q1

REPORT INFORMATION
  Report Type: Spontaneous
  Country: US (occurrence: US)
  Receive Date: 20110504
  Receipt Date: 20130227
  Transmission Date: 20140127
  Serious: Yes (Hospitalization, Other)
  Sender: FDA-Public Use
  Company Number: US-AMGEN-USASP2011021587

PATIENT
  Age: 73 Year
  Sex: Female

DRUGS (5)
  1. ENBREL [Suspect]
     Indication: RHEUMATOID ARTHRITIS
     Dosage: 25 MG, 2 TIMES/WK
     Dates: start: 20021112
  2. ENBREL [Suspect]
     Indication: PSORIASIS
  3. ENBREL [Suspect]
     Indication: PSORIATIC ARTHROPATHY
  4. TREXALL [Concomitant]
     Dosage: 1 MG, UNK
     Dates: start: 2002
  5. METHOTREXATE [Concomitant]
     Dosage: 7.5 CC/ 18.75 MG IM WEEKLY

REACTIONS (29)
  - Retinal haemorrhage [Unknown]
  - Myocardial infarction [Recovered/Resolved]
  - Retinal vascular occlusion [Not Recovered/Not Resolved]
  - Blindness unilateral [Not Recovered/Not Resolved]
  - Atrial fibrillation [Recovered/Resolved]
  - Hypertension [Recovered/Resolved]
  - Abasia [Not Recovered/Not Resolved]
  - Arteriosclerosis [Not Recovered/Not Resolved]
  - Hepatic lesion [Not Recovered/Not Resolved]
  - Respiratory disorder [Recovered/Resolved]
  - Fall [Recovered/Resolved]
  - Spinal column injury [Recovered/Resolved]
  - Pneumothorax [Recovered/Resolved]
  - Cardiac failure congestive [Not Recovered/Not Resolved]
  - Musculoskeletal stiffness [Not Recovered/Not Resolved]
  - Pain [Not Recovered/Not Resolved]
  - Neck pain [Not Recovered/Not Resolved]
  - Spinal pain [Not Recovered/Not Resolved]
  - Arthralgia [Not Recovered/Not Resolved]
  - Therapeutic response decreased [Unknown]
  - Gait disturbance [Not Recovered/Not Resolved]
  - Spinal column stenosis [Unknown]
  - Osteoarthritis [Unknown]
  - Cardiac disorder [Unknown]
  - Local swelling [Not Recovered/Not Resolved]
  - Dysstasia [Not Recovered/Not Resolved]
  - Diabetes mellitus [Not Recovered/Not Resolved]
  - Nail operation [Not Recovered/Not Resolved]
  - Condition aggravated [Unknown]
